FAERS Safety Report 6552643-7 (Version None)
Quarter: 2010Q1

REPORT INFORMATION
  Report Type: 
  Country: None (occurrence: None)
  Receive Date: 20100126
  Receipt Date: 20100125
  Transmission Date: 20100710
  Serious: Yes (Hospitalization)
  Sender: FDA-Public Use
  Company Number: A0841263A

PATIENT
  Age: 41 Year
  Sex: Male
  Weight: 172.7 kg

DRUGS (1)
  1. AVANDIA [Suspect]
     Indication: DIABETES MELLITUS
     Route: 048
     Dates: start: 20030101, end: 20050101

REACTIONS (7)
  - CEREBROVASCULAR ACCIDENT [None]
  - COMA [None]
  - DEPRESSION [None]
  - GAIT DISTURBANCE [None]
  - ILL-DEFINED DISORDER [None]
  - PAIN [None]
  - VISUAL ACUITY REDUCED [None]
